FAERS Safety Report 25140386 (Version 1)
Quarter: 2025Q2

REPORT INFORMATION
  Report Type: Spontaneous
  Country: US (occurrence: None)
  Receive Date: 20250328
  Receipt Date: 20250328
  Transmission Date: 20250717
  Serious: Yes (Other)
  Sender: FDA-CTU
  Company Number: None

PATIENT
  Age: 69 Year
  Sex: Female
  Weight: 72.9 kg

DRUGS (2)
  1. DEXAMETHASONE [Suspect]
     Active Substance: DEXAMETHASONE
     Indication: Respiratory disorder
     Route: 030
     Dates: start: 20250325, end: 20250325
  2. MEDROL [Suspect]
     Active Substance: METHYLPREDNISOLONE

REACTIONS (6)
  - Dizziness [None]
  - Dizziness [None]
  - Lethargy [None]
  - Cold sweat [None]
  - Unresponsive to stimuli [None]
  - Electrocardiogram T wave abnormal [None]

NARRATIVE: CASE EVENT DATE: 20250325
